FAERS Safety Report 8503090-X (Version None)
Quarter: 2012Q3

REPORT INFORMATION
  Report Type: 
  Country: None (occurrence: None)
  Receive Date: 20120711
  Receipt Date: 20120701
  Transmission Date: 20120928
  Serious: Yes (Hospitalization)
  Sender: FDA-Public Use
  Company Number: CA-ELI_LILLY_AND_COMPANY-CA201207001096

PATIENT
  Age: 65 Year
  Sex: Female

DRUGS (4)
  1. TEGRETOL [Concomitant]
  2. CALCIUM [Concomitant]
  3. PHENOBARBITAL [Concomitant]
  4. FORTEO [Suspect]
     Indication: OSTEOPOROSIS
     Dosage: 20 UG, QD
     Route: 058
     Dates: start: 20100806, end: 20120616

REACTIONS (5)
  - DYSPHAGIA [None]
  - DYSPHONIA [None]
  - SALIVARY GLAND CALCULUS [None]
  - SALIVARY GLAND ENLARGEMENT [None]
  - DYSPNOEA [None]
